FAERS Safety Report 22058466 (Version 5)
Quarter: 2023Q1

REPORT INFORMATION
  Report Type: Report from Study
  Country: NO (occurrence: None)
  Receive Date: 20230303
  Receipt Date: 20230321
  Transmission Date: 20230418
  Serious: Yes (Hospitalization)
  Sender: FDA-Public Use
  Company Number: NO-ROCHE-3296107

PATIENT
  Age: 57 Year
  Sex: Male
  Weight: 95.9 kg

DRUGS (17)
  1. COBIMETINIB [Suspect]
     Active Substance: COBIMETINIB
     Indication: Metastatic malignant melanoma
     Dosage: ON 06/NOV/2022, THE MOST RECENT DOSE OF COBIMETINIB PRIOR TO SAE
     Route: 048
     Dates: start: 20221026
  2. SYSTANE COMPLETE [Concomitant]
     Active Substance: PROPYLENE GLYCOL
     Indication: Eye pain
     Route: 047
     Dates: start: 20221026
  3. ELOCON [Concomitant]
     Active Substance: MOMETASONE FUROATE
     Indication: Dermatitis
     Route: 061
     Dates: start: 20221102
  4. ELOCON [Concomitant]
     Active Substance: MOMETASONE FUROATE
     Indication: Dermatitis acneiform
  5. SYNALAR [Concomitant]
     Active Substance: FLUOCINOLONE ACETONIDE
     Indication: Dermatitis acneiform
     Route: 061
     Dates: start: 20221109
  6. DOXYCYCLINE [Concomitant]
     Active Substance: DOXYCYCLINE
     Indication: Dermatitis acneiform
     Route: 048
     Dates: start: 20221109
  7. PANTOPRAZOLE SODIUM [Concomitant]
     Active Substance: PANTOPRAZOLE SODIUM
     Indication: Dermatitis acneiform
     Route: 048
     Dates: start: 20221115
  8. LACTULOSE [Concomitant]
     Active Substance: LACTULOSE
     Indication: Ammonia increased
     Route: 048
     Dates: start: 20221123
  9. LACTULOSE [Concomitant]
     Active Substance: LACTULOSE
     Indication: Cognitive disorder
     Route: 048
     Dates: start: 20230112
  10. MOVICOL [Concomitant]
     Active Substance: POLYETHYLENE GLYCOL 3350\POTASSIUM CHLORIDE\SODIUM BICARBONATE\SODIUM CHLORIDE
     Indication: Ammonia increased
     Dosage: 1 BOX
     Route: 048
     Dates: start: 20221125
  11. MOVICOL [Concomitant]
     Active Substance: POLYETHYLENE GLYCOL 3350\POTASSIUM CHLORIDE\SODIUM BICARBONATE\SODIUM CHLORIDE
     Route: 048
     Dates: start: 20230112
  12. LANTUS [Concomitant]
     Active Substance: INSULIN GLARGINE
     Indication: Diabetes mellitus
     Route: 058
     Dates: start: 2021
  13. TARGINIQ ER [Concomitant]
     Active Substance: NALOXONE HYDROCHLORIDE\OXYCODONE HYDROCHLORIDE
     Indication: Pain
     Route: 048
     Dates: start: 2019
  14. LYRICA [Concomitant]
     Active Substance: PREGABALIN
     Indication: Pain
     Route: 048
     Dates: start: 2019
  15. ZYRTEC (NORWAY) [Concomitant]
     Indication: Seasonal allergy
     Route: 048
     Dates: start: 2019
  16. TRIATEX [Concomitant]
     Active Substance: TRIAMCINOLONE ACETONIDE
     Indication: Hypertension
     Route: 048
     Dates: start: 2021
  17. ACETAMINOPHEN [Concomitant]
     Active Substance: ACETAMINOPHEN
     Indication: Pain
     Route: 048
     Dates: start: 20221109

REACTIONS (1)
  - Abdominal pain [Not Recovered/Not Resolved]

NARRATIVE: CASE EVENT DATE: 20230223
